FAERS Safety Report 7325638-3 (Version None)
Quarter: 2011Q1

REPORT INFORMATION
  Report Type: 
  Country: None (occurrence: None)
  Receive Date: 20110302
  Receipt Date: 20110224
  Transmission Date: 20110831
  Serious: Yes (Hospitalization, Disabling)
  Sender: FDA-Public Use
  Company Number: US-PFIZER INC-2010161549

PATIENT
  Sex: Female

DRUGS (5)
  1. CHANTIX [Suspect]
     Dosage: STARTER PACK
     Dates: start: 20100501, end: 20100501
  2. FLEXERIL [Concomitant]
     Indication: MUSCLE SPASMS
     Dosage: UNK
     Dates: start: 20040101
  3. FLEXERIL [Concomitant]
     Indication: PAIN
  4. CHANTIX [Suspect]
     Indication: SMOKING CESSATION THERAPY
     Dosage: STARTER PACK AND CONTINUING PACKS
     Dates: start: 20080901, end: 20090101
  5. AMOXICILLIN [Concomitant]
     Indication: INFECTION
     Dosage: UNK
     Dates: start: 20030101, end: 20100101

REACTIONS (7)
  - DEPRESSION [None]
  - BIPOLAR DISORDER [None]
  - ANXIETY [None]
  - HALLUCINATION [None]
  - SUICIDAL IDEATION [None]
  - DELUSION [None]
  - PANIC ATTACK [None]
